FAERS Safety Report 5025541-8 (Version None)
Quarter: 2006Q2

REPORT INFORMATION
  Report Type: 
  Country: None (occurrence: None)
  Receive Date: 20060607
  Receipt Date: 20060518
  Transmission Date: 20061013
  Serious: Yes (Other)
  Sender: FDA-Public Use
  Company Number: MX200512000468

PATIENT
  Age: 61 Year
  Sex: Female

DRUGS (10)
  1. FORTEO [Suspect]
     Indication: OSTEOPOROSIS
     Dosage: 20 UNK, DAILY (1/D),
  2. FUROSEMIDE [Concomitant]
  3. NIFEDIPINE [Concomitant]
  4. CALCIUM WITH VITAMIN D (CALCIUM PHOSPHATE, CALCIUM SODIUM LACTATE, ERG [Concomitant]
  5. ETORICOXIB [Concomitant]
  6. EPOGEN [Concomitant]
  7. HERRON OSTEO ESE         (GLUCOSAMINE HYDROCHLORIDE) [Concomitant]
  8. LANTUS [Concomitant]
  9. LOSARTAN [Concomitant]
  10. FORTEO [Concomitant]

REACTIONS (5)
  - BONE NEOPLASM [None]
  - FLATULENCE [None]
  - METASTASES TO MUSCLE [None]
  - METASTASIS [None]
  - PELVIC FRACTURE [None]
